FAERS Safety Report 21163040 (Version 1)
Quarter: 2022Q3

REPORT INFORMATION
  Report Type: Spontaneous
  Country: US (occurrence: US)
  Receive Date: 20220802
  Receipt Date: 20220802
  Transmission Date: 20221027
  Serious: Yes (Other)
  Sender: FDA-Public Use
  Company Number: US-ELI_LILLY_AND_COMPANY-US202207009737

PATIENT

DRUGS (8)
  1. TALTZ [Suspect]
     Active Substance: IXEKIZUMAB
     Indication: Psoriatic arthropathy
     Dosage: 80 MG, UNKNOWN
     Route: 064
  2. TALTZ [Suspect]
     Active Substance: IXEKIZUMAB
     Indication: Psoriatic arthropathy
     Dosage: 80 MG, UNKNOWN
     Route: 064
  3. ZOFRAN 4 ZYDIS [Concomitant]
     Indication: Morning sickness
     Dosage: 4 MG, UNKNOWN
     Route: 048
     Dates: start: 20220414, end: 20220614
  4. ZOFRAN 4 ZYDIS [Concomitant]
     Indication: Morning sickness
     Dosage: 4 MG, UNKNOWN
     Route: 048
     Dates: start: 20220414, end: 20220614
  5. ASPIRIN [Concomitant]
     Active Substance: ASPIRIN
     Indication: Pre-eclampsia
     Dosage: 81 MG, UNKNOWN
     Route: 048
     Dates: start: 20220331
  6. ASPIRIN [Concomitant]
     Active Substance: ASPIRIN
     Indication: Pre-eclampsia
     Dosage: 81 MG, UNKNOWN
     Route: 048
     Dates: start: 20220331
  7. CLOBETASOL [Concomitant]
     Active Substance: CLOBETASOL
     Indication: Psoriasis
     Dosage: UNK, UNKNOWN
     Route: 061
     Dates: start: 20220630, end: 20220714
  8. CLOBETASOL [Concomitant]
     Active Substance: CLOBETASOL
     Indication: Psoriasis
     Dosage: UNK, UNKNOWN
     Route: 061
     Dates: start: 20220630, end: 20220714

REACTIONS (2)
  - Abnormal cord insertion [Not Recovered/Not Resolved]
  - Foetal exposure timing unspecified [Unknown]

NARRATIVE: CASE EVENT DATE: 20220523
